FAERS Safety Report 9118021 (Version 1)
Quarter: 2013Q1

REPORT INFORMATION
  Report Type: Report from Study
  Country: US (occurrence: US)
  Receive Date: 20130129
  Receipt Date: 20130129
  Transmission Date: 20140127
  Serious: No
  Sender: FDA-Public Use
  Company Number: US-ABBOTT-12P-163-0941910-00

PATIENT
  Age: 49 Year
  Sex: Female

DRUGS (4)
  1. HUMIRA 40 MG/0.8 ML PEN [Suspect]
     Indication: ANKYLOSING SPONDYLITIS
     Dates: start: 201006
  2. LORTAB [Concomitant]
     Indication: PAIN
  3. SKELAXIN [Concomitant]
     Indication: PAIN
  4. CYMBALTA [Concomitant]
     Indication: FIBROMYALGIA
     Dates: start: 201203

REACTIONS (4)
  - Injection site pain [Recovered/Resolved]
  - Rash [Recovered/Resolved]
  - Rash [Not Recovered/Not Resolved]
  - Injection site bruising [Recovered/Resolved]
